FAERS Safety Report 7179426-1 (Version None)
Quarter: 2010Q4

REPORT INFORMATION
  Report Type: 
  Country: None (occurrence: None)
  Receive Date: 20101217
  Receipt Date: 20101217
  Transmission Date: 20110411
  Serious: Yes (Hospitalization)
  Sender: FDA-Public Use
  Company Number: None

PATIENT
  Sex: Female
  Weight: 44.68 kg

DRUGS (2)
  1. CARBOPLATIN [Suspect]
     Dosage: 630 MG
     Dates: end: 20101201
  2. TAXOL [Suspect]
     Dosage: 252 MG
     Dates: end: 20101201

REACTIONS (4)
  - BLOOD POTASSIUM DECREASED [None]
  - FEBRILE NEUTROPENIA [None]
  - HYPOTENSION [None]
  - SINUS TACHYCARDIA [None]
